FAERS Safety Report 21516140 (Version 1)
Quarter: 2022Q4

REPORT INFORMATION
  Report Type: Spontaneous
  Country: US (occurrence: US)
  Receive Date: 20221027
  Receipt Date: 20221027
  Transmission Date: 20230113
  Serious: No
  Sender: FDA-Public Use
  Company Number: US-FOUNDATIONCONSUMERHC-2022-US-018661

PATIENT
  Sex: Female

DRUGS (1)
  1. PLAN B ONE-STEP [Suspect]
     Active Substance: LEVONORGESTREL
     Indication: Post coital contraception
     Dosage: 1.5 MG
     Route: 048

REACTIONS (5)
  - Intentional product misuse [Recovered/Resolved]
  - Vaginal haemorrhage [Unknown]
  - Menstruation delayed [Unknown]
  - Inappropriate schedule of product administration [Recovered/Resolved]
  - Abdominal distension [Not Recovered/Not Resolved]
